FAERS Safety Report 7956574-7 (Version None)
Quarter: 2011Q4

REPORT INFORMATION
  Report Type: 
  Country: None (occurrence: None)
  Receive Date: 20111205
  Receipt Date: 20111124
  Transmission Date: 20120403
  Serious: Yes (Other)
  Sender: FDA-Public Use
  Company Number: PHHY2010CA05103

PATIENT
  Sex: Female

DRUGS (1)
  1. ZOLEDRONOC ACID [Suspect]
     Indication: OSTEOPOROSIS
     Dosage: UNK
     Route: 042
     Dates: start: 20100127

REACTIONS (6)
  - INFLUENZA LIKE ILLNESS [None]
  - FALL [None]
  - UPPER LIMB FRACTURE [None]
  - PAIN [None]
  - RHINORRHOEA [None]
  - PYREXIA [None]
